FAERS Safety Report 8538662-X (Version None)
Quarter: 2012Q3

REPORT INFORMATION
  Report Type: 
  Country: None (occurrence: None)
  Receive Date: 20120718
  Receipt Date: 20120718
  Transmission Date: 20120928
  Serious: Yes (Hospitalization, Disabling)
  Sender: FDA-Public Use
  Company Number: None

PATIENT
  Age: 62 Year
  Sex: Male
  Weight: 122.4712 kg

DRUGS (1)
  1. CARVEDILOL [Suspect]
     Dosage: 12.5 MG 2 PER DAY
     Dates: start: 20120707, end: 20120708

REACTIONS (3)
  - PAIN IN EXTREMITY [None]
  - BONE DISORDER [None]
  - ABASIA [None]
